FAERS Safety Report 5988163-8 (Version None)
Quarter: 2008Q4

REPORT INFORMATION
  Report Type: 
  Country: None (occurrence: None)
  Receive Date: 20081203
  Receipt Date: 20081126
  Transmission Date: 20090506
  Serious: Yes (Hospitalization)
  Sender: FDA-Public Use
  Company Number: 2008SP020433

PATIENT
  Age: 61 Year
  Sex: Female
  Weight: 60 kg

DRUGS (4)
  1. PEG-INTRON [Suspect]
     Indication: HEPATITIS C
     Dosage: 80 MCG; QW; SC
     Route: 058
     Dates: start: 20080222, end: 20080904
  2. RIBAVIRIN [Suspect]
     Indication: HEPATITIS C
     Dosage: 1000 MG;BID;PO;  800 MG;BID;PO;  400 MG;BID;PO
     Route: 048
     Dates: start: 20080222, end: 20080402
  3. RIBAVIRIN [Suspect]
     Indication: HEPATITIS C
     Dosage: 1000 MG;BID;PO;  800 MG;BID;PO;  400 MG;BID;PO
     Route: 048
     Dates: start: 20080403, end: 20080716
  4. RIBAVIRIN [Suspect]
     Indication: HEPATITIS C
     Dosage: 1000 MG;BID;PO;  800 MG;BID;PO;  400 MG;BID;PO
     Route: 048
     Dates: start: 20080717, end: 20080904

REACTIONS (2)
  - CRYPTOCOCCUS ANTIGEN POSITIVE [None]
  - MENINGITIS [None]
